FAERS Safety Report 6773137-X (Version None)
Quarter: 2010Q2

REPORT INFORMATION
  Report Type: 
  Country: None (occurrence: None)
  Receive Date: 20100616
  Receipt Date: 20100325
  Transmission Date: 20101027
  Serious: No
  Sender: FDA-Public Use
  Company Number: US-TYCO HEALTHCARE/MALLINCKRODT-T201000908

PATIENT
  Sex: Male

DRUGS (2)
  1. ULTRATAG [Suspect]
     Indication: RADIOISOTOPE SCAN
     Dosage: UNK UNK, SINGLE
     Route: 042
  2. ULTRA-TECHNEKOW [Concomitant]
     Indication: RADIOISOTOPE SCAN
     Dosage: 20 MCI, SINGLE
     Route: 042
     Dates: start: 20100325, end: 20100325

REACTIONS (1)
  - DRUG INEFFECTIVE [None]
